FAERS Safety Report 24766675 (Version 1)
Quarter: 2024Q4

REPORT INFORMATION
  Report Type: Spontaneous
  Country: US (occurrence: None)
  Receive Date: 20241223
  Receipt Date: 20241223
  Transmission Date: 20250114
  Serious: Yes (Life-Threatening, Hospitalization)
  Sender: Public
  Company Number: None

PATIENT

DRUGS (1)
  1. ACETAZOLAMIDE [Suspect]
     Active Substance: ACETAZOLAMIDE

REACTIONS (6)
  - Paraesthesia [None]
  - Nausea [None]
  - Dehydration [None]
  - Eye pain [None]
  - Product prescribing error [None]
  - Product dispensing issue [None]

NARRATIVE: CASE EVENT DATE: 20241021
